FAERS Safety Report 22528726 (Version 1)
Quarter: 2023Q2

REPORT INFORMATION
  Report Type: Spontaneous
  Country: DE (occurrence: DE)
  Receive Date: 20230607
  Receipt Date: 20230607
  Transmission Date: 20230722
  Serious: No
  Sender: FDA-Public Use
  Company Number: None

PATIENT
  Age: 34 Year
  Sex: Female
  Weight: 73 kg

DRUGS (1)
  1. IMPLANON [Suspect]
     Active Substance: ETONOGESTREL
     Indication: Contraceptive implant
     Dosage: UNK
     Dates: start: 20230216, end: 20230430

REACTIONS (4)
  - Urticaria [Unknown]
  - Wound [Recovering/Resolving]
  - Implant site inflammation [Recovering/Resolving]
  - Device expulsion [Recovering/Resolving]

NARRATIVE: CASE EVENT DATE: 20230101
